FAERS Safety Report 9242141 (Version 1)
Quarter: 2013Q2

REPORT INFORMATION
  Report Type: Spontaneous
  Country: US (occurrence: US)
  Receive Date: 20130419
  Receipt Date: 20130419
  Transmission Date: 20140414
  Serious: No
  Sender: FDA-Public Use
  Company Number: US-PFIZER INC-2013120075

PATIENT
  Age: 61 Year
  Sex: Female
  Weight: 63 kg

DRUGS (2)
  1. LEVOXYL [Suspect]
     Indication: HYPOTHYROIDISM
     Dosage: 50 UG, 1X/DAY
  2. THYROXINE [Suspect]
     Indication: HYPOTHYROIDISM

REACTIONS (3)
  - Drug prescribing error [Unknown]
  - Palpitations [Unknown]
  - Drug intolerance [Unknown]
